FAERS Safety Report 6122381-3 (Version None)
Quarter: 2009Q1

REPORT INFORMATION
  Report Type: 
  Country: None (occurrence: None)
  Receive Date: 20090316
  Receipt Date: 20090316
  Transmission Date: 20090719
  Serious: No
  Sender: FDA-Public Use
  Company Number: None

PATIENT
  Age: 58 Year
  Sex: Male
  Weight: 121.564 kg

DRUGS (1)
  1. ASTEPRO [Suspect]
     Indication: NASAL CONGESTION
     Dosage: 1 SPRAY/TWICE DAY
     Dates: start: 20090311, end: 20090312

REACTIONS (1)
  - PROSTATOMEGALY [None]
